FAERS Safety Report 8939766 (Version 1)
Quarter: 2012Q4

REPORT INFORMATION
  Report Type: Report from Study
  Country: FR (occurrence: FR)
  Receive Date: 20121130
  Receipt Date: 20121130
  Transmission Date: 20130627
  Serious: Yes (Hospitalization)
  Sender: FDA-Public Use
  Company Number: FR-ABBOTT-12P-056-1013429-00

PATIENT
  Age: 35 Year
  Sex: Female

DRUGS (1)
  1. KALETRA TABLETS [Suspect]
     Indication: HIV INFECTION
     Dosage: 200/50
     Route: 048
     Dates: start: 20090505, end: 20090722

REACTIONS (1)
  - HELLP syndrome [Recovered/Resolved]
